FAERS Safety Report 7999445-2 (Version None)
Quarter: 2011Q4

REPORT INFORMATION
  Report Type: 
  Country: None (occurrence: None)
  Receive Date: 20111221
  Receipt Date: 20111216
  Transmission Date: 20120403
  Serious: Yes (Death)
  Sender: FDA-Public Use
  Company Number: US-ASTRAZENECA-2011SE76875

PATIENT
  Age: 73 Year
  Sex: Female

DRUGS (7)
  1. SERTRALINE HYDROCHLORIDE [Suspect]
     Route: 048
  2. HYDROXYZINE [Suspect]
     Route: 048
  3. OMEPRAZOLE [Suspect]
     Route: 048
  4. GABAPENTIN [Suspect]
     Route: 048
  5. ANTIHYPERLIPIDEMIC [Suspect]
     Route: 048
  6. METOPROLOL TARTRATE [Suspect]
     Route: 048
  7. PHENYTOIN [Suspect]
     Route: 048

REACTIONS (1)
  - TOXICITY TO VARIOUS AGENTS [None]
